FAERS Safety Report 6631222-7 (Version None)
Quarter: 2010Q1

REPORT INFORMATION
  Report Type: 
  Country: None (occurrence: None)
  Receive Date: 20100312
  Receipt Date: 20100305
  Transmission Date: 20100710
  Serious: Yes (Other)
  Sender: FDA-Public Use
  Company Number: 2008BI012530

PATIENT
  Age: 70 Year
  Sex: Female
  Weight: 69 kg

DRUGS (4)
  1. AVONEX [Suspect]
     Indication: MULTIPLE SCLEROSIS
     Route: 030
     Dates: start: 19970101, end: 20030101
  2. AVONEX [Suspect]
     Route: 030
     Dates: start: 20030101, end: 20070801
  3. AVONEX [Suspect]
     Route: 030
     Dates: end: 20090601
  4. AVONEX [Suspect]
     Route: 030
     Dates: start: 20100224

REACTIONS (3)
  - CHEST PAIN [None]
  - HODGKIN'S DISEASE LYMPHOCYTE PREDOMINANCE TYPE STAGE III [None]
  - PLEURITIC PAIN [None]
